FAERS Safety Report 17203653 (Version 1)
Quarter: 2019Q4

REPORT INFORMATION
  Report Type: Spontaneous
  Country: AT (occurrence: AT)
  Receive Date: 20191226
  Receipt Date: 20191226
  Transmission Date: 20200122
  Serious: Yes (Life-Threatening)
  Sender: FDA-Public Use
  Company Number: AT-JNJFOC-20191233214

PATIENT
  Age: 77 Year
  Sex: Male
  Weight: 104 kg

DRUGS (1)
  1. RIVAROXABAN [Suspect]
     Active Substance: RIVAROXABAN
     Indication: ATRIAL FIBRILLATION
     Dosage: 20MG 1-0-0-0
     Route: 048
     Dates: start: 2016, end: 20160816

REACTIONS (5)
  - Stridor [Recovering/Resolving]
  - Dyspnoea [Recovering/Resolving]
  - Laryngeal haematoma [Recovering/Resolving]
  - Dysphagia [Recovering/Resolving]
  - Laryngeal discomfort [Recovering/Resolving]

NARRATIVE: CASE EVENT DATE: 20160818
